FAERS Safety Report 7436090-1 (Version None)
Quarter: 2011Q2

REPORT INFORMATION
  Report Type: 
  Country: None (occurrence: None)
  Receive Date: 20110425
  Receipt Date: 20110419
  Transmission Date: 20111010
  Serious: Yes (Death, Hospitalization)
  Sender: FDA-Public Use
  Company Number: JP-ABBOTT-07P-087-0362788-00

PATIENT
  Sex: Male

DRUGS (5)
  1. LEUPLIN SR FOR INJECTION 11.25 MG [Suspect]
     Indication: PROSTATE CANCER STAGE III
     Route: 058
     Dates: start: 20060901, end: 20060901
  2. OMEPRAL [Concomitant]
     Indication: GASTRIC ULCER
     Route: 048
     Dates: end: 20061013
  3. CASODEX [Concomitant]
     Indication: PROSTATE CANCER STAGE III
     Route: 048
     Dates: start: 20060901, end: 20061013
  4. GASTROM [Concomitant]
     Indication: GASTRIC ULCER
     Route: 048
     Dates: end: 20061013
  5. PREDONINE [Concomitant]
     Indication: INTERSTITIAL LUNG DISEASE
     Dosage: MORNING/EVENING
     Route: 048
     Dates: start: 20060315, end: 20061013

REACTIONS (1)
  - INTERSTITIAL LUNG DISEASE [None]
